FAERS Safety Report 24023947 (Version 2)
Quarter: 2024Q2

REPORT INFORMATION
  Report Type: Report from Study
  Country: CN (occurrence: CN)
  Receive Date: 20240627
  Receipt Date: 20240628
  Transmission Date: 20240716
  Serious: No
  Sender: FDA-Public Use
  Company Number: CN-ROCHE-3363901

PATIENT
  Age: 39 Year
  Sex: Female
  Weight: 72.0 kg

DRUGS (4)
  1. ALECTINIB [Suspect]
     Active Substance: ALECTINIB
     Indication: Lung cancer metastatic
     Dosage: PRE-STUDY ALECTINIB DOSE
     Route: 065
     Dates: start: 20191021
  2. ALECTINIB [Suspect]
     Active Substance: ALECTINIB
     Route: 048
     Dates: start: 20210902
  3. CEFACLOR [Concomitant]
     Active Substance: CEFACLOR
     Dosage: BRING DOWN A FEVER
     Route: 048
     Dates: start: 202305, end: 202305
  4. PHOSPHOLIPID [Concomitant]
     Active Substance: PHOSPHOLIPID
     Dosage: DOSE: 2 CAPSULE
     Route: 048
     Dates: start: 20230626

REACTIONS (1)
  - Blood bilirubin increased [Not Recovered/Not Resolved]

NARRATIVE: CASE EVENT DATE: 20211025
